FAERS Safety Report 7711756-4 (Version None)
Quarter: 2011Q3

REPORT INFORMATION
  Report Type: 
  Country: None (occurrence: None)
  Receive Date: 20110826
  Receipt Date: 20110817
  Transmission Date: 20111222
  Serious: Yes (Other)
  Sender: FDA-Public Use
  Company Number: US-CUBIST-2011S1000533

PATIENT

DRUGS (12)
  1. CEFEPIME [Concomitant]
     Indication: OSTEOMYELITIS
     Route: 042
  2. ALL OTHER THERAPEUTIC PRODUCTS [Concomitant]
     Indication: INTERVERTEBRAL DISCITIS
     Route: 042
  3. ALL OTHER THERAPEUTIC PRODUCTS [Concomitant]
     Indication: SPINAL COLUMN STENOSIS
     Route: 042
  4. CUBICIN [Suspect]
     Indication: STAPHYLOCOCCAL OSTEOMYELITIS
     Route: 042
  5. CUBICIN [Suspect]
     Indication: INTERVERTEBRAL DISCITIS
     Route: 042
  6. VANCOMYCIN [Concomitant]
     Indication: OSTEOMYELITIS
     Route: 042
  7. CEFEPIME [Concomitant]
     Indication: SPINAL COLUMN STENOSIS
     Route: 042
  8. VANCOMYCIN [Concomitant]
     Indication: SPINAL COLUMN STENOSIS
     Route: 042
  9. ALL OTHER THERAPEUTIC PRODUCTS [Concomitant]
     Indication: OSTEOMYELITIS
     Route: 042
  10. CEFEPIME [Concomitant]
     Indication: INTERVERTEBRAL DISCITIS
     Route: 042
  11. CUBICIN [Suspect]
     Indication: SPINAL COLUMN STENOSIS
     Route: 042
  12. VANCOMYCIN [Concomitant]
     Indication: INTERVERTEBRAL DISCITIS
     Route: 042

REACTIONS (1)
  - EXTRADURAL ABSCESS [None]
